FAERS Safety Report 18242623 (Version 2)
Quarter: 2025Q1

REPORT INFORMATION
  Report Type: Spontaneous
  Country: US (occurrence: US)
  Receive Date: 20200908
  Receipt Date: 20250321
  Transmission Date: 20250409
  Serious: No
  Sender: BIOGEN
  Company Number: US-BIOGEN-2020BI00920723

PATIENT
  Age: 25 Year
  Sex: Female

DRUGS (2)
  1. TECFIDERA [Suspect]
     Active Substance: DIMETHYL FUMARATE
     Indication: Multiple sclerosis
     Route: 050
     Dates: start: 202008
  2. TECFIDERA [Suspect]
     Active Substance: DIMETHYL FUMARATE
     Route: 050
     Dates: start: 20160208, end: 20170719

REACTIONS (6)
  - Balance disorder [Unknown]
  - Dizziness [Unknown]
  - Dysarthria [Unknown]
  - Paraesthesia [Unknown]
  - Brain fog [Unknown]
  - Speech disorder [Unknown]

NARRATIVE: CASE EVENT DATE: 20200831
